FAERS Safety Report 9723674 (Version 2)
Quarter: 2013Q4

REPORT INFORMATION
  Report Type: Spontaneous
  Country: IT (occurrence: IT)
  Receive Date: 20131202
  Receipt Date: 20131219
  Transmission Date: 20140711
  Serious: Yes (Hospitalization)
  Sender: FDA-Public Use
  Company Number: IT-GLAXOSMITHKLINE-B0948560A

PATIENT
  Age: 23 Year
  Sex: Female

DRUGS (3)
  1. PAROXETINE [Suspect]
     Indication: SUICIDE ATTEMPT
     Dosage: 200MG PER DAY
     Route: 048
     Dates: start: 20131021
  2. OXCARBAZEPINE [Suspect]
     Indication: SUICIDE ATTEMPT
     Dosage: 3600MG PER DAY
     Route: 065
     Dates: start: 20131021
  3. DIAZEPAM [Suspect]
     Indication: SUICIDE ATTEMPT
     Route: 065
     Dates: start: 20131021

REACTIONS (2)
  - Drug abuse [Recovered/Resolved]
  - Stupor [Recovered/Resolved]
